FAERS Safety Report 16672884 (Version 1)
Quarter: 2019Q3

REPORT INFORMATION
  Report Type: Spontaneous
  Country: US (occurrence: US)
  Receive Date: 20190805
  Receipt Date: 20190805
  Transmission Date: 20191004
  Serious: Yes (Hospitalization)
  Sender: FDA-Public Use
  Company Number: None

PATIENT
  Age: 69 Year
  Sex: Female
  Weight: 67.4 kg

DRUGS (10)
  1. APREPITANT. [Concomitant]
     Active Substance: APREPITANT
     Dates: start: 20190718
  2. DOXORUBICIN [Concomitant]
     Active Substance: DOXORUBICIN
     Dates: start: 20190718
  3. DEXAMETHASONE. [Concomitant]
     Active Substance: DEXAMETHASONE
     Dates: start: 20190718
  4. PALONOSETRON. [Concomitant]
     Active Substance: PALONOSETRON HYDROCHLORIDE
     Dates: start: 20190718
  5. PEGFILGRASTIM-CBQV [Suspect]
     Active Substance: PEGFILGRASTIM-CBQV
     Indication: PROPHYLACTIC CHEMOTHERAPY
     Dosage: ?          OTHER FREQUENCY:ONCE;?
     Route: 058
     Dates: start: 20190718
  6. METHOTREXATE. [Concomitant]
     Active Substance: METHOTREXATE
     Dates: start: 20190718
  7. VINBLASTINE [Concomitant]
     Active Substance: VINBLASTINE
     Dates: start: 20190718
  8. LOPERAMIDE [Concomitant]
     Active Substance: LOPERAMIDE
     Dates: start: 20190718
  9. LORATADINE. [Concomitant]
     Active Substance: LORATADINE
     Dates: start: 20190718
  10. CISPLATIN. [Concomitant]
     Active Substance: CISPLATIN
     Dates: start: 20190718

REACTIONS (1)
  - Neutropenia [None]

NARRATIVE: CASE EVENT DATE: 20190719
